FAERS Safety Report 8295484-5 (Version None)
Quarter: 2012Q2

REPORT INFORMATION
  Report Type: 
  Country: None (occurrence: None)
  Receive Date: 20120418
  Receipt Date: 20120410
  Transmission Date: 20120825
  Serious: Yes (Other)
  Sender: FDA-Public Use
  Company Number: US-BAYER-2012-034572

PATIENT
  Sex: Female

DRUGS (11)
  1. CELEBREX [Suspect]
     Indication: PAIN
     Dosage: 100 MG, BID
     Dates: start: 20110101
  2. ALEVE (CAPLET) [Suspect]
     Indication: PAIN
  3. VALIUM [Concomitant]
     Indication: DYSKINESIA
  4. MOTRIN [Suspect]
     Indication: PAIN
  5. VOLTAREN [Suspect]
     Indication: PAIN
  6. NITROFURANTOIN [Suspect]
     Indication: INFECTION
  7. NAPROSYN [Suspect]
     Indication: PAIN
  8. LYRICA [Suspect]
     Indication: PAIN
  9. VALIUM [Concomitant]
     Indication: MUSCLE SPASMS
  10. OPIAT [Suspect]
     Indication: PAIN
  11. HYDROCODONE BITARTRATE [Suspect]
     Indication: PAIN

REACTIONS (10)
  - GASTRIC DISORDER [None]
  - PANIC ATTACK [None]
  - PARAESTHESIA [None]
  - SPINAL DISORDER [None]
  - MENTAL IMPAIRMENT [None]
  - ADVERSE DRUG REACTION [None]
  - APHTHOUS STOMATITIS [None]
  - DRY MOUTH [None]
  - INFLAMMATION [None]
  - PAIN [None]
